FAERS Safety Report 4622970-9 (Version None)
Quarter: 2005Q1

REPORT INFORMATION
  Report Type: 
  Country: None (occurrence: None)
  Receive Date: 20050329
  Receipt Date: 20000108
  Transmission Date: 20050727
  Serious: No
  Sender: FDA-Public Use
  Company Number: 4005

PATIENT
  Age: 14 Year
  Sex: Male

DRUGS (8)
  1. CYTARABINE [Suspect]
     Indication: ACUTE LYMPHOCYTIC LEUKAEMIA
     Dosage: 2.6 G
     Route: 042
     Dates: start: 19991110
  2. FLUCLOXACILLIN [Concomitant]
  3. CEFTAZIDIME [Concomitant]
  4. ALLOPURINOL [Concomitant]
  5. NYSTATIN [Concomitant]
  6. FLUCONAZOLE [Concomitant]
  7. HYDROCORTISONE [Concomitant]
  8. DIHYDROCODEINE BITARTRATE INJ [Concomitant]

REACTIONS (5)
  - BRONCHOSPASM [None]
  - CHEST PAIN [None]
  - HYPERTENSION [None]
  - OXYGEN SATURATION DECREASED [None]
  - TACHYCARDIA [None]
